FAERS Safety Report 18278556 (Version 2)
Quarter: 2020Q4

REPORT INFORMATION
  Report Type: Spontaneous
  Country: GB (occurrence: GB)
  Receive Date: 20200917
  Receipt Date: 20201109
  Transmission Date: 20210113
  Serious: Yes (Other)
  Sender: FDA-Public Use
  Company Number: GB-ALEXION-A202013333

PATIENT
  Age: 80 Year
  Sex: Female

DRUGS (3)
  1. SOLIRIS [Suspect]
     Active Substance: ECULIZUMAB
     Indication: PAROXYSMAL NOCTURNAL HAEMOGLOBINURIA
     Dosage: UNK, Q2W
     Route: 065
  2. SOLIRIS [Suspect]
     Active Substance: ECULIZUMAB
     Indication: APLASTIC ANAEMIA
  3. SOLIRIS [Suspect]
     Active Substance: ECULIZUMAB
     Indication: OFF LABEL USE

REACTIONS (8)
  - Mycobacterium tuberculosis complex test positive [Recovered/Resolved]
  - Skin ulcer [Recovered/Resolved]
  - Infection reactivation [Unknown]
  - Bone lesion [Recovered/Resolved]
  - Off label use [Unknown]
  - Tendon neoplasm [Recovered/Resolved]
  - Pancreatic carcinoma metastatic [Unknown]
  - Latent tuberculosis [Unknown]
